FAERS Safety Report 24250728 (Version 1)
Quarter: 2024Q3

REPORT INFORMATION
  Report Type: Spontaneous
  Country: US (occurrence: US)
  Receive Date: 20240826
  Receipt Date: 20240826
  Transmission Date: 20241017
  Serious: No
  Sender: MEDEXUS PHARMA
  Company Number: US-MEDEXUS PHARMA, INC.-2023MED00500

PATIENT
  Age: 68 Year
  Sex: Female
  Weight: 86.168 kg

DRUGS (4)
  1. RASUVO [Suspect]
     Active Substance: METHOTREXATE SODIUM
     Indication: Rheumatoid arthritis
     Dosage: 22.5 MG INJECTED IN THIGHS, 1X/WEEK ON TUESDAYS
     Route: 065
     Dates: start: 202308
  2. DULOXETINE [Concomitant]
     Active Substance: DULOXETINE
  3. HYDROXYCHLOROQUINE [Concomitant]
     Active Substance: HYDROXYCHLOROQUINE
  4. PREDNISONE [Concomitant]
     Active Substance: PREDNISONE

REACTIONS (8)
  - Daydreaming [Recovered/Resolved]
  - Injection site pain [Recovered/Resolved]
  - Cervical spinal stenosis [Unknown]
  - Pain in extremity [Recovered/Resolved]
  - Electrocardiogram abnormal [Unknown]
  - Inappropriate schedule of product administration [Recovered/Resolved]
  - Product administered at inappropriate site [Recovered/Resolved]
  - Device use error [Recovered/Resolved]

NARRATIVE: CASE EVENT DATE: 20230801
